FAERS Safety Report 5926887-9 (Version None)
Quarter: 2008Q4

REPORT INFORMATION
  Report Type: 
  Country: None (occurrence: None)
  Receive Date: 20081022
  Receipt Date: 20081014
  Transmission Date: 20090506
  Serious: Yes (Hospitalization, Other)
  Sender: FDA-Public Use
  Company Number: PHHO2008US05402

PATIENT
  Sex: Male
  Weight: 102.04 kg

DRUGS (4)
  1. ALISKIREN ALI+TAB+CF [Suspect]
     Indication: CARDIOVASCULAR DISORDER
     Dosage: UNK
     Route: 048
     Dates: start: 20080103, end: 20080130
  2. ALISKIREN ALI+TAB+CF [Suspect]
     Dosage: CODE NOT BROKEN
     Route: 048
     Dates: start: 20080131, end: 20080417
  3. LASIX [Concomitant]
  4. ZOCOR [Concomitant]

REACTIONS (20)
  - ABASIA [None]
  - ASTHENIA [None]
  - DEEP VEIN THROMBOSIS [None]
  - DIARRHOEA [None]
  - DIVERTICULUM [None]
  - DYSPEPSIA [None]
  - DYSPNOEA [None]
  - DYSSTASIA [None]
  - GASTROENTERITIS [None]
  - LUNG DISORDER [None]
  - NAUSEA [None]
  - PAIN [None]
  - POLYARTHRITIS [None]
  - PROSTATOMEGALY [None]
  - PULMONARY EMBOLISM [None]
  - RENAL ATROPHY [None]
  - RENAL CYST [None]
  - RENAL FAILURE [None]
  - TRICUSPID VALVE INCOMPETENCE [None]
  - VOMITING [None]
